FAERS Safety Report 9202841 (Version 2)
Quarter: 2013Q2

REPORT INFORMATION
  Report Type: Spontaneous
  Country: US (occurrence: US)
  Receive Date: 20130401
  Receipt Date: 20130419
  Transmission Date: 20140414
  Serious: Yes (Other)
  Sender: FDA-Public Use
  Company Number: US-AMGEN-USASP2013021325

PATIENT
  Age: 65 Year
  Sex: Female
  Weight: 74.83 kg

DRUGS (15)
  1. ENBREL [Suspect]
     Indication: RHEUMATOID ARTHRITIS
     Dosage: 50 MG, QWK
     Route: 058
  2. ORENCIA [Concomitant]
     Dosage: 125 MG/ML, UNK
  3. PREDNISONE [Concomitant]
     Dosage: 2.5 MG, UNK
  4. CENTRUM                            /07499601/ [Concomitant]
     Dosage: UNK
  5. TRAMADOL HYDROCHLORIDE [Concomitant]
     Dosage: 50 MG, UNK
  6. LEFLUNOMIDE [Concomitant]
     Dosage: 20 MG, UNK
  7. METFORMIN [Concomitant]
     Dosage: 500 MG, UNK
  8. LISINOPRIL [Concomitant]
     Dosage: 30 MG, UNK
  9. IBUPROFEN [Concomitant]
     Dosage: 200 MG, UNK
  10. FISH OIL [Concomitant]
     Dosage: UNK
  11. VITAMIN D /00107901/ [Concomitant]
     Dosage: 1000 UNIT, UNK
  12. VITAMIN B COMPLEX [Concomitant]
     Dosage: UNK
  13. CALCIUM [Concomitant]
     Dosage: 500 UNK, UNK
  14. ETODOLAC [Concomitant]
     Dosage: 200 MG, UNK
  15. WELCHOL [Concomitant]
     Dosage: 625 MG, UNK

REACTIONS (5)
  - Drug hypersensitivity [Unknown]
  - Injection site swelling [Unknown]
  - Injection site reaction [Unknown]
  - Injection site erythema [Unknown]
  - Injection site pruritus [Unknown]
